FAERS Safety Report 24178305 (Version 1)
Quarter: 2024Q3

REPORT INFORMATION
  Report Type: Report from Study
  Country: CA (occurrence: CA)
  Receive Date: 20240806
  Receipt Date: 20240806
  Transmission Date: 20241017
  Serious: Yes (Other)
  Sender: BIOCON
  Company Number: CA-BIOCON BIOLOGICS LIMITED-BBL2024005611

PATIENT

DRUGS (1)
  1. HULIO [Suspect]
     Active Substance: ADALIMUMAB-FKJP
     Indication: Psoriatic arthropathy
     Dosage: 40 MILLIGRAM, Q2W, 1 EVERY 2 WEEKS (SOLUTION)
     Route: 058

REACTIONS (6)
  - Abdominal distension [Unknown]
  - Illness [Unknown]
  - Weight loss poor [Unknown]
  - Upper respiratory tract infection [Unknown]
  - Nausea [Unknown]
  - Pneumonia [Unknown]
